FAERS Safety Report 18106034 (Version 3)
Quarter: 2020Q4

REPORT INFORMATION
  Report Type: Spontaneous
  Country: DE (occurrence: DE)
  Receive Date: 20200803
  Receipt Date: 20201204
  Transmission Date: 20210113
  Serious: Yes (Other)
  Sender: FDA-Public Use
  Company Number: NVSC2020DE190613

PATIENT
  Sex: Male
  Weight: 105 kg

DRUGS (46)
  1. VALSARTAN. [Suspect]
     Active Substance: VALSARTAN
     Indication: PRODUCT USED FOR UNKNOWN INDICATION
     Dosage: 320 MG, QD (ABZ) (1-0-0 ONCE)
     Route: 048
     Dates: start: 20150610
  2. VALSARTAN. [Suspect]
     Active Substance: VALSARTAN
     Dosage: 320 MG, QD (ABZ)
     Route: 065
     Dates: start: 20170421
  3. VALSACOR [Suspect]
     Active Substance: VALSARTAN
     Dosage: 320 MG, QD (TAD PHARMA)
     Route: 065
     Dates: start: 20170714
  4. VALSARTAN DURA [Suspect]
     Active Substance: VALSARTAN
     Dosage: 320 MG, QD (1-0-0, ONCE)
     Route: 048
     Dates: start: 20150921
  5. CIPROFLOXACIN AL [Concomitant]
     Active Substance: CIPROFLOXACIN
     Indication: PRODUCT USED FOR UNKNOWN INDICATION
     Dosage: 500 MG
     Route: 048
  6. CIPROFLOXACIN AL [Concomitant]
     Active Substance: CIPROFLOXACIN
     Dosage: UNK
     Route: 048
  7. METOHEXAL SUCC [Concomitant]
     Active Substance: METOPROLOL SUCCINATE
     Indication: PRODUCT USED FOR UNKNOWN INDICATION
     Dosage: 47.5 MG, QD (TABLET, DELAYED RELEASE)
     Route: 048
  8. NOVAMINSULFON LICHTENSTEIN [Concomitant]
     Active Substance: METAMIZOLE SODIUM
     Dosage: AS NEEDED
     Route: 048
  9. VALSARTAN. [Suspect]
     Active Substance: VALSARTAN
     Dosage: 320 MG, QD  (ABZ)
     Route: 065
     Dates: start: 20170103
  10. VALSACOR [Suspect]
     Active Substance: VALSARTAN
     Dosage: 320 MG, QD (TAD PHARMA)
     Route: 065
     Dates: start: 20181105
  11. VALSARTAN DURA [Suspect]
     Active Substance: VALSARTAN
     Dosage: 320 MG, QD
     Route: 065
     Dates: start: 20160413
  12. DUODART [Concomitant]
     Active Substance: DUTASTERIDE\TAMSULOSIN
     Indication: PRODUCT USED FOR UNKNOWN INDICATION
     Dosage: UNK
     Route: 048
  13. HCT DEXCEL [Concomitant]
     Active Substance: HYDROCHLOROTHIAZIDE
     Indication: PRODUCT USED FOR UNKNOWN INDICATION
     Dosage: UNK, QD, 1-0-0
     Route: 048
  14. METOPROLOLSUCCINAT AL [Concomitant]
     Active Substance: METOPROLOL SUCCINATE
     Indication: PRODUCT USED FOR UNKNOWN INDICATION
     Dosage: 47.5 MG, QD (TABLET, DELAYED RELEASE)
     Route: 048
  15. CANDESARTAN 1 A PHARMA [Concomitant]
     Active Substance: CANDESARTAN
     Dosage: UNK, QD, 1-0-0
     Route: 048
  16. HCT 1 A PHARMA [Concomitant]
     Active Substance: HYDROCHLOROTHIAZIDE
     Indication: PRODUCT USED FOR UNKNOWN INDICATION
     Dosage: 25 MG, QD
     Route: 048
  17. VALSARTAN. [Suspect]
     Active Substance: VALSARTAN
     Dosage: UNK, 320MG/25MG, QD (TAD PHARMA), ONCE DAILY
     Route: 065
     Dates: start: 20181011
  18. VALSACOR [Suspect]
     Active Substance: VALSARTAN
     Dosage: 320 MG, QD (TAD PHARMA)
     Route: 065
     Dates: start: 20181011
  19. VALSARTAN DURA [Suspect]
     Active Substance: VALSARTAN
     Dosage: 320 MG, QD (1-0-0, ONCE)
     Route: 048
     Dates: start: 20150327
  20. METOHEXAL SUCC [Concomitant]
     Active Substance: METOPROLOL SUCCINATE
     Dosage: 1-0-0
     Route: 048
  21. LEVOFLOXACIN 1 A PHARMA [Concomitant]
     Active Substance: LEVOFLOXACIN
     Dosage: UNK
     Route: 048
  22. VALSARTAN. [Suspect]
     Active Substance: VALSARTAN
     Dosage: UNK, 320MG/25MG, QD (TAD PHARMA), ONCE DAILY
     Route: 065
     Dates: start: 20181105
  23. VALSARTAN. [Suspect]
     Active Substance: VALSARTAN
     Dosage: UNK, 320MG/25MG, QD (TAD PHARMA), ONCE DAILY
     Route: 065
     Dates: start: 20180713
  24. VALSACOR [Suspect]
     Active Substance: VALSARTAN
     Dosage: 320 MG, QD (TAD PHARMA)
     Route: 065
     Dates: start: 20171101
  25. VALSARTAN DURA [Suspect]
     Active Substance: VALSARTAN
     Dosage: 320 MG, QD
     Route: 065
     Dates: start: 20160107
  26. NOVAMINSULFON LICHTENSTEIN [Concomitant]
     Active Substance: METAMIZOLE SODIUM
     Indication: PRODUCT USED FOR UNKNOWN INDICATION
     Dosage: 500 MG, PRN
     Route: 048
  27. METOPROLOLSUCCINAT AL [Concomitant]
     Active Substance: METOPROLOL SUCCINATE
     Dosage: UNK, QD, 1-0-0
     Route: 048
  28. IBUFLAM [Concomitant]
     Indication: PRODUCT USED FOR UNKNOWN INDICATION
     Dosage: 800 MG, PRN
     Route: 048
  29. LEVOFLOXACIN 1 A PHARMA [Concomitant]
     Active Substance: LEVOFLOXACIN
     Indication: PRODUCT USED FOR UNKNOWN INDICATION
     Dosage: 500 MG
     Route: 048
  30. HCT HEXAL [Concomitant]
     Active Substance: HYDROCHLOROTHIAZIDE
     Indication: PRODUCT USED FOR UNKNOWN INDICATION
     Dosage: 25 MG, QD
     Route: 048
  31. VALSARTAN. [Suspect]
     Active Substance: VALSARTAN
     Dosage: , 320MG/25MG, QD (TAD PHARMA), ONCE DAILY UNK
     Route: 065
     Dates: start: 20190312
  32. VALSACOR [Suspect]
     Active Substance: VALSARTAN
     Dosage: 320 MG, QD (TAD PHARMA)
     Route: 065
     Dates: start: 20180713
  33. VALSARTAN DURA [Suspect]
     Active Substance: VALSARTAN
     Indication: PRODUCT USED FOR UNKNOWN INDICATION
     Dosage: 320 MG, QD
     Route: 065
     Dates: start: 2013
  34. CANDESARTAN 1 A PHARMA [Concomitant]
     Active Substance: CANDESARTAN
     Indication: PRODUCT USED FOR UNKNOWN INDICATION
     Dosage: 32 MG, QD
     Route: 048
  35. AMLODIPIN [Concomitant]
     Active Substance: AMLODIPINE BESYLATE
     Indication: PRODUCT USED FOR UNKNOWN INDICATION
     Dosage: 5 MG, QD (FAIR-MED HEALTHCARE, 1-0-0)
     Route: 048
  36. VALSACOR [Suspect]
     Active Substance: VALSARTAN
     Indication: PRODUCT USED FOR UNKNOWN INDICATION
     Dosage: 320 MG, QD  (TAD PHARMA)
     Route: 065
     Dates: start: 20160711
  37. HCT BETA [Concomitant]
     Active Substance: HYDROCHLOROTHIAZIDE
     Indication: PRODUCT USED FOR UNKNOWN INDICATION
     Dosage: 25 MG, QD
     Route: 048
  38. VALSACOR [Suspect]
     Active Substance: VALSARTAN
     Dosage: 320 MG, QD (TAD PHARMA)
     Route: 065
     Dates: start: 20180312
  39. VALSACOR [Suspect]
     Active Substance: VALSARTAN
     Dosage: 320 MG, QD (TAD PHARMA)
     Route: 065
     Dates: start: 20190312
  40. HCT BETA [Concomitant]
     Active Substance: HYDROCHLOROTHIAZIDE
     Dosage: UNK, QD, 1-0-0
     Route: 048
  41. METOPROLOLSUCCINAT DURA [Concomitant]
     Active Substance: METOPROLOL SUCCINATE
     Indication: PRODUCT USED FOR UNKNOWN INDICATION
     Dosage: 47.5 MG, QD (TABLET, DELAYED RELEASE)
     Route: 048
  42. METOPROLOLSUCCINAT DURA [Concomitant]
     Active Substance: METOPROLOL SUCCINATE
     Dosage: UNK, QD, 1-0-0
     Route: 048
  43. AMOXI 1A PHARMA [Concomitant]
     Active Substance: AMOXICILLIN
     Indication: PRODUCT USED FOR UNKNOWN INDICATION
     Dosage: UNK, (1000)
     Route: 048
  44. HCT HEXAL [Concomitant]
     Active Substance: HYDROCHLOROTHIAZIDE
     Dosage: UNK, QD, 1-0-0
     Route: 048
  45. VALSARTAN. [Suspect]
     Active Substance: VALSARTAN
     Dosage: 320 MILLIGRAM, QD (TAD PHARMA)
     Route: 048
     Dates: start: 20170714, end: 20190312
  46. HCT 1 A PHARMA [Concomitant]
     Active Substance: HYDROCHLOROTHIAZIDE
     Dosage: UNK, QD, 1-0-0
     Route: 048

REACTIONS (10)
  - Fear of disease [Not Recovered/Not Resolved]
  - Mental impairment [Not Recovered/Not Resolved]
  - Sleep disorder [Not Recovered/Not Resolved]
  - Fear [Unknown]
  - Hypertension [Unknown]
  - Benign prostatic hyperplasia [Unknown]
  - Impaired quality of life [Not Recovered/Not Resolved]
  - Muscle tightness [Unknown]
  - Disturbance in attention [Not Recovered/Not Resolved]
  - Gastrointestinal disorder [Unknown]

NARRATIVE: CASE EVENT DATE: 201901
